FAERS Safety Report 5252534-8 (Version None)
Quarter: 2007Q1

REPORT INFORMATION
  Report Type: 
  Country: None (occurrence: None)
  Receive Date: 20070301
  Receipt Date: 20070222
  Transmission Date: 20070707
  Serious: Yes (Hospitalization)
  Sender: FDA-Public Use
  Company Number: US-JNJFOC-20070205493

PATIENT
  Sex: Female

DRUGS (12)
  1. INFLIXIMAB [Suspect]
     Indication: RHEUMATOID ARTHRITIS
     Route: 042
  2. PREDNISONE [Concomitant]
  3. ARAVA [Concomitant]
  4. WELLBUTRIN [Concomitant]
  5. CELEBREX [Concomitant]
  6. CELEXA [Concomitant]
  7. BENICAR HCT [Concomitant]
  8. FOLIC ACID [Concomitant]
  9. CALTRATE [Concomitant]
  10. HYDROCODONE [Concomitant]
  11. L-LYSINE [Concomitant]
  12. NEXIUM [Concomitant]

REACTIONS (1)
  - COLONIC FISTULA [None]
